FAERS Safety Report 8356245-1 (Version None)
Quarter: 2012Q2

REPORT INFORMATION
  Report Type: 
  Country: None (occurrence: None)
  Receive Date: 20120514
  Receipt Date: 20120504
  Transmission Date: 20120825
  Serious: Yes (Hospitalization)
  Sender: FDA-Public Use
  Company Number: US-US-EMD SERONO, INC.-7130539

PATIENT
  Sex: Female

DRUGS (6)
  1. REBIF [Suspect]
     Indication: MULTIPLE SCLEROSIS
     Dates: start: 20120330
  2. HYDROCODONE BITARTRATE [Concomitant]
     Indication: HEADACHE
  3. CITALOPRAM [Concomitant]
     Indication: DEPRESSION
  4. ATIVAN [Concomitant]
     Indication: PRODUCT USED FOR UNKNOWN INDICATION
  5. RITALIN [Concomitant]
     Indication: ATTENTION DEFICIT/HYPERACTIVITY DISORDER
  6. REBIF [Suspect]
     Route: 058

REACTIONS (2)
  - GRAND MAL CONVULSION [None]
  - INFLUENZA [None]
